FAERS Safety Report 10912411 (Version 2)
Quarter: 2015Q2

REPORT INFORMATION
  Report Type: Spontaneous
  Country: US (occurrence: US)
  Receive Date: 20150313
  Receipt Date: 20150511
  Transmission Date: 20150821
  Serious: No
  Sender: FDA-Public Use
  Company Number: US-PFIZER INC-2015084705

PATIENT
  Age: 62 Year
  Sex: Female
  Weight: 75 kg

DRUGS (3)
  1. ADVIL [Suspect]
     Active Substance: IBUPROFEN
     Indication: MYALGIA
     Dosage: 400 MG, UNK
     Dates: start: 2015
  2. ADVIL [Suspect]
     Active Substance: IBUPROFEN
     Dosage: 600 MG, UNK
     Dates: start: 2015
  3. ADVIL [Suspect]
     Active Substance: IBUPROFEN
     Dosage: 800 MG, UNK
     Dates: start: 2015, end: 2015

REACTIONS (1)
  - Drug ineffective [Unknown]

NARRATIVE: CASE EVENT DATE: 2015
